FAERS Safety Report 9511435 (Version 1)
Quarter: 2013Q3

REPORT INFORMATION
  Report Type: Spontaneous
  Country: US (occurrence: None)
  Receive Date: 20130906
  Receipt Date: 20130906
  Transmission Date: 20140515
  Serious: Yes (Other)
  Sender: FDA-Public Use
  Company Number: AUR-APL-2013-07285

PATIENT
  Age: 22 Year
  Sex: Male

DRUGS (2)
  1. LEVETIRACETAM [Suspect]
     Indication: CONVULSION
  2. PHENYTOIN [Suspect]
     Indication: CONVULSION

REACTIONS (7)
  - Convulsion [None]
  - Confusional state [None]
  - Pulmonary oedema [None]
  - Pleural effusion [None]
  - Torsade de pointes [None]
  - Nodal arrhythmia [None]
  - Pyrexia [None]
